FAERS Safety Report 5665251-7 (Version None)
Quarter: 2008Q1

REPORT INFORMATION
  Report Type: 
  Country: None (occurrence: None)
  Receive Date: 20080314
  Receipt Date: 20030503
  Transmission Date: 20080703
  Serious: No
  Sender: FDA-Public Use
  Company Number: US-ABBOTT-04P-163-0259473-00

PATIENT
  Sex: Female
  Weight: 79.45 kg

DRUGS (2)
  1. HUMIRA [Suspect]
     Indication: RHEUMATOID ARTHRITIS
     Route: 058
     Dates: start: 20040418, end: 20040418
  2. PARACETAMOL [Concomitant]
     Indication: RHEUMATOID ARTHRITIS
     Route: 048

REACTIONS (6)
  - ABDOMINAL PAIN UPPER [None]
  - LIVER DISORDER [None]
  - NAUSEA [None]
  - PRURITUS [None]
  - SWELLING FACE [None]
  - URTICARIA [None]
